FAERS Safety Report 23732983 (Version 1)
Quarter: 2024Q2

REPORT INFORMATION
  Report Type: Spontaneous
  Country: US (occurrence: None)
  Receive Date: 20240411
  Receipt Date: 20240411
  Transmission Date: 20240716
  Serious: No
  Sender: FDA-Public Use
  Company Number: None

PATIENT
  Age: 54 Year
  Sex: 0

DRUGS (2)
  1. GAMMAGARD LIQUID [Suspect]
     Active Substance: HUMAN IMMUNOGLOBULIN G
     Dosage: OTHER FREQUENCY : 2 DAYS EVERY 4 WKS;?
     Route: 042
     Dates: start: 20240216, end: 20240217
  2. GAMMAGARD S/D [Suspect]
     Active Substance: HUMAN IMMUNOGLOBULIN G

REACTIONS (1)
  - Rash pruritic [None]

NARRATIVE: CASE EVENT DATE: 20240410
